FAERS Safety Report 12071479 (Version 1)
Quarter: 2016Q1

REPORT INFORMATION
  Report Type: Spontaneous
  Country: BR (occurrence: BR)
  Receive Date: 20160211
  Receipt Date: 20160211
  Transmission Date: 20160526
  Serious: Yes (Other)
  Sender: FDA-Public Use
  Company Number: BR-MALLINCKRODT-T201600382

PATIENT
  Age: 40 Year
  Sex: Female

DRUGS (4)
  1. METFORMIN [Concomitant]
     Active Substance: METFORMIN HYDROCHLORIDE
     Dosage: 1000 MG, BID
  2. OPTIMARK [Suspect]
     Active Substance: GADOVERSETAMIDE
     Indication: NUCLEAR MAGNETIC RESONANCE IMAGING
     Dosage: 10 ML, SINGLE, VIA ELITE INJECTOR, AT A RATE OF 2.0 ML/SEC.
     Dates: start: 20151229, end: 20151229
  3. HUMAN INSULINK [Concomitant]
     Dosage: 16 UI IN THE MORNING AND 10 IU AT NIGHT
  4. SALINE                             /00075401/ [Suspect]
     Active Substance: SODIUM CHLORIDE
     Dosage: 250 ML, UNK

REACTIONS (3)
  - Dyspnoea [Recovered/Resolved]
  - Dysphagia [Recovered/Resolved]
  - Throat irritation [Recovered/Resolved]

NARRATIVE: CASE EVENT DATE: 20151229
